FAERS Safety Report 9938146 (Version 1)
Quarter: 2014Q1

REPORT INFORMATION
  Report Type: Spontaneous
  Country: NL (occurrence: NL)
  Receive Date: 20140303
  Receipt Date: 20140303
  Transmission Date: 20141002
  Serious: Yes (Hospitalization)
  Sender: FDA-Public Use
  Company Number: NL-JNJFOC-20140213928

PATIENT
  Age: 80 Year
  Sex: Female
  Weight: 65 kg

DRUGS (6)
  1. HALOPERIDOL [Suspect]
     Indication: DELIRIUM
     Route: 048
     Dates: start: 20140109, end: 20140120
  2. MEMANTINE [Interacting]
     Indication: DEMENTIA ALZHEIMER^S TYPE
     Dosage: 5 MG
     Route: 048
     Dates: start: 20140115, end: 20140120
  3. FRAXIPARINE [Concomitant]
     Route: 058
  4. MOVICOLON [Concomitant]
     Route: 048
  5. PARACETAMOL [Concomitant]
     Route: 048
  6. ACETYLSALICYLIC ACID [Concomitant]
     Route: 048
     Dates: start: 20140114

REACTIONS (2)
  - Drug interaction [Recovered/Resolved]
  - Orthostatic hypotension [Recovered/Resolved]
